FAERS Safety Report 5873352-3 (Version None)
Quarter: 2008Q3

REPORT INFORMATION
  Report Type: 
  Country: None (occurrence: None)
  Receive Date: 20080908
  Receipt Date: 20080825
  Transmission Date: 20090109
  Serious: Yes (Other)
  Sender: FDA-Public Use
  Company Number: DE-BAUSCH-2008BL002688

PATIENT
  Age: 56 Year
  Sex: Male

DRUGS (20)
  1. DEXAGEL AUGENTROPFEN [Suspect]
     Indication: DRUG USE FOR UNKNOWN INDICATION
     Route: 047
     Dates: start: 20080104, end: 20080111
  2. XALATAN /SWE/ [Suspect]
     Indication: DRUG USE FOR UNKNOWN INDICATION
     Route: 047
     Dates: start: 20071201
  3. TIM-OPHTAL 0.1% AUGENTROPFEN [Suspect]
     Indication: INTRAOCULAR PRESSURE INCREASED
     Route: 047
     Dates: start: 20080104, end: 20080213
  4. BOTOX [Concomitant]
     Indication: CORNEAL EPITHELIUM DEFECT
     Route: 003
     Dates: start: 20080114, end: 20080114
  5. ACTIHAEMYL [Concomitant]
     Indication: DRUG USE FOR UNKNOWN INDICATION
     Route: 047
     Dates: start: 20080101
  6. KANAMYTREX [Concomitant]
     Indication: DRUG USE FOR UNKNOWN INDICATION
     Route: 047
     Dates: start: 20080101
  7. ACIC-OPHTAL [Concomitant]
     Indication: DRUG USE FOR UNKNOWN INDICATION
     Route: 047
     Dates: start: 20080102
  8. BORO-SCOPOL [Concomitant]
     Indication: DRUG USE FOR UNKNOWN INDICATION
     Route: 047
     Dates: start: 20080102
  9. CORNEREGEL [Concomitant]
     Indication: DRUG USE FOR UNKNOWN INDICATION
     Route: 047
     Dates: start: 20080104
  10. KANAMYTREX [Concomitant]
     Route: 047
     Dates: start: 20080130
  11. FLOXAL AUGENSALBE [Concomitant]
     Indication: DRUG USE FOR UNKNOWN INDICATION
     Route: 047
     Dates: start: 20080201
  12. TOBRAMAXIN [Concomitant]
     Indication: DRUG USE FOR UNKNOWN INDICATION
     Route: 047
     Dates: start: 20080201
  13. FLOXAL AUGENTROPFEN [Concomitant]
     Indication: DRUG USE FOR UNKNOWN INDICATION
     Route: 047
     Dates: start: 20080214
  14. BORO-SCOPOL [Concomitant]
     Route: 047
     Dates: start: 20080227
  15. FLOXAL AUGENSALBE [Concomitant]
     Route: 047
     Dates: start: 20080213
  16. TOBRAMAXIN [Concomitant]
     Route: 047
     Dates: start: 20080213
  17. TOBRADEX [Concomitant]
     Indication: DRUG USE FOR UNKNOWN INDICATION
     Route: 047
     Dates: start: 20080323
  18. OFTAQUIX /GFR/ [Concomitant]
     Indication: DRUG USE FOR UNKNOWN INDICATION
     Route: 047
     Dates: start: 20080323
  19. FLOXAL EDO AUGENTROPFEN [Concomitant]
     Indication: DRUG USE FOR UNKNOWN INDICATION
     Route: 047
     Dates: start: 20080111, end: 20080429
  20. BEPANTHEN ^ROCHE^ [Concomitant]
     Indication: DRUG USE FOR UNKNOWN INDICATION
     Route: 047
     Dates: start: 20080323

REACTIONS (9)
  - CORNEAL DEPOSITS [None]
  - CORNEAL EROSION [None]
  - CORNEAL INFILTRATES [None]
  - DISEASE RECURRENCE [None]
  - EYELID PTOSIS [None]
  - IMPAIRED HEALING [None]
  - INTRAOCULAR PRESSURE INCREASED [None]
  - TRANSPLANT [None]
  - VISUAL ACUITY REDUCED [None]
